FAERS Safety Report 9862131 (Version 2)
Quarter: 2014Q2

REPORT INFORMATION
  Report Type: Spontaneous
  Country: US (occurrence: US)
  Receive Date: 20140203
  Receipt Date: 20140408
  Transmission Date: 20141212
  Serious: No
  Sender: FDA-Public Use
  Company Number: US-009507513-1401USA013364

PATIENT
  Sex: Female

DRUGS (5)
  1. JANUVIA [Suspect]
     Indication: DIABETES MELLITUS
     Dosage: 100 MG, QD
     Route: 048
     Dates: start: 201309
  2. METOPROLOL [Concomitant]
  3. LISINOPRIL [Concomitant]
     Route: 048
  4. AMLODIPINE [Concomitant]
  5. METFORMIN [Concomitant]

REACTIONS (1)
  - Rhinorrhoea [Not Recovered/Not Resolved]
